FAERS Safety Report 8690199 (Version 2)
Quarter: 2013Q4

REPORT INFORMATION
  Report Type: Spontaneous
  Country: US (occurrence: US)
  Receive Date: 20120727
  Receipt Date: 20131031
  Transmission Date: 20140711
  Serious: Yes (Death, Hospitalization)
  Sender: FDA-Public Use
  Company Number: US-009507513-1207USA009526

PATIENT
  Age: 32 Year
  Sex: Male

DRUGS (3)
  1. DEXAMETHASONE [Suspect]
     Indication: BRAIN OEDEMA
     Dosage: 4 MG, BID
     Route: 048
  2. BEVACIZUMAB [Suspect]
     Indication: GLIOBLASTOMA MULTIFORME
  3. ETOPOSIDE [Concomitant]
     Indication: GLIOBLASTOMA MULTIFORME

REACTIONS (1)
  - Skin striae [Fatal]
